FAERS Safety Report 19541460 (Version 2)
Quarter: 2021Q3

REPORT INFORMATION
  Report Type: Spontaneous
  Country: US (occurrence: US)
  Receive Date: 20210714
  Receipt Date: 20210819
  Transmission Date: 20211014
  Serious: No
  Sender: FDA-Public Use
  Company Number: NVSC2021US154248

PATIENT
  Sex: Male

DRUGS (1)
  1. VOTRIENT [Suspect]
     Active Substance: PAZOPANIB HYDROCHLORIDE
     Indication: RENAL CANCER
     Dosage: 800 MG, QD
     Route: 048
     Dates: start: 20210323

REACTIONS (5)
  - Pyrexia [Unknown]
  - Renal disorder [Unknown]
  - Hypertension [Unknown]
  - Peripheral swelling [Unknown]
  - Oropharyngeal discomfort [Unknown]
